FAERS Safety Report 7835096-8 (Version None)
Quarter: 2011Q4

REPORT INFORMATION
  Report Type: 
  Country: None (occurrence: None)
  Receive Date: 20111024
  Receipt Date: 20111011
  Transmission Date: 20120403
  Serious: Yes (Hospitalization, Other)
  Sender: FDA-Public Use
  Company Number: US-ELI_LILLY_AND_COMPANY-US201109003121

PATIENT
  Age: 37 Year
  Sex: Female
  Weight: 63.492 kg

DRUGS (1)
  1. CYMBALTA [Suspect]
     Indication: DEPRESSION
     Dosage: UNK, UNKNOWN

REACTIONS (4)
  - LOSS OF CONSCIOUSNESS [None]
  - FALL [None]
  - TOOTH INJURY [None]
  - UPPER LIMB FRACTURE [None]
